FAERS Safety Report 8606595 (Version 3)
Quarter: 2013Q2

REPORT INFORMATION
  Report Type: Spontaneous
  Country: US (occurrence: US)
  Receive Date: 20120608
  Receipt Date: 20130410
  Transmission Date: 20140414
  Serious: Yes (Hospitalization, Other)
  Sender: FDA-Public Use
  Company Number: US-ASTRAZENECA-2011SE52113

PATIENT
  Age: 76 Year
  Sex: Female

DRUGS (2)
  1. PULMICORT RESPULES [Suspect]
     Route: 055
  2. SYMBICORT PMDI [Suspect]
     Route: 055

REACTIONS (8)
  - Lung infection [Unknown]
  - Chronic obstructive pulmonary disease [Unknown]
  - Infection [Unknown]
  - Lung disorder [Unknown]
  - Pneumothorax [Unknown]
  - Dyspnoea [Recovering/Resolving]
  - Off label use [Unknown]
  - Drug ineffective [Unknown]
